FAERS Safety Report 6154392-6 (Version None)
Quarter: 2009Q2

REPORT INFORMATION
  Report Type: 
  Country: None (occurrence: None)
  Receive Date: 20090414
  Receipt Date: 20090403
  Transmission Date: 20091009
  Serious: Yes (Other)
  Sender: FDA-Public Use
  Company Number: CA-ELI_LILLY_AND_COMPANY-CA200902005177

PATIENT
  Sex: Female

DRUGS (6)
  1. CYMBALTA [Suspect]
     Indication: AFFECTIVE DISORDER
     Dosage: 120 MG, DAILY (1/D)
     Dates: start: 20080307
  2. ZOPICLONE [Concomitant]
     Dosage: 7.5 MG, UNK
  3. ZOPICLONE [Concomitant]
     Dosage: 15 MG, EACH EVENING
     Dates: start: 20080301
  4. ZOPICLONE [Concomitant]
     Dosage: 2 MG, EACH EVENING
  5. RISPERIDONE [Concomitant]
     Dosage: 0.5 MG, 3/D
     Dates: start: 20081101
  6. TEMAZEPAM [Concomitant]
     Dosage: 30 MG, DAILY (1/D)
     Dates: start: 20080901

REACTIONS (2)
  - ABORTION SPONTANEOUS [None]
  - DRUG EXPOSURE DURING PREGNANCY [None]
